FAERS Safety Report 19608961 (Version 1)
Quarter: 2021Q3

REPORT INFORMATION
  Report Type: Other
  Country: GB (occurrence: GB)
  Receive Date: 20210726
  Receipt Date: 20210726
  Transmission Date: 20211014
  Serious: Yes (Death, Hospitalization)
  Sender: FDA-Public Use
  Company Number: GB-CELLTRION INC.-2018GB019968

PATIENT

DRUGS (10)
  1. TRUXIMA [Suspect]
     Active Substance: RITUXIMAB-ABBS
     Dosage: 2 G, DAILY
     Route: 042
     Dates: start: 20180426, end: 20180426
  2. ETORICOXIB. [Concomitant]
     Active Substance: ETORICOXIB
  3. PREGABALIN. [Concomitant]
     Active Substance: PREGABALIN
  4. AMLODIPINE [Concomitant]
     Active Substance: AMLODIPINE BESYLATE
  5. EKLIRA GENUAIR [Concomitant]
     Active Substance: ACLIDINIUM BROMIDE
  6. SIMVASTATIN. [Concomitant]
     Active Substance: SIMVASTATIN
  7. TRUXIMA [Suspect]
     Active Substance: RITUXIMAB-ABBS
     Indication: RHEUMATOID ARTHRITIS
     Dosage: 2 G, DAILY
     Route: 042
     Dates: start: 20171116, end: 20171116
  8. SALAZOPYRIN [Concomitant]
     Active Substance: SULFASALAZINE
  9. BECLOMETASONE [Concomitant]
     Active Substance: BECLOMETHASONE DIPROPIONATE
  10. INVITA D3 [Concomitant]

REACTIONS (6)
  - Interstitial lung disease [Fatal]
  - Incorrect dose administered [Unknown]
  - Acute respiratory failure [Fatal]
  - Sinusitis [Fatal]
  - Inappropriate schedule of product administration [Unknown]
  - Emphysema [Fatal]

NARRATIVE: CASE EVENT DATE: 20171116
